FAERS Safety Report 5115558-7 (Version None)
Quarter: 2006Q3

REPORT INFORMATION
  Report Type: 
  Country: None (occurrence: None)
  Receive Date: 20060927
  Receipt Date: 20060915
  Transmission Date: 20061208
  Serious: Yes (Death, Hospitalization)
  Sender: FDA-Public Use
  Company Number: DE-JNJFOC-20060804440

PATIENT
  Sex: Female

DRUGS (11)
  1. RISPERDAL [Suspect]
     Indication: AFFECT LABILITY
     Route: 065
  2. TOPAMAX [Suspect]
     Route: 065
  3. TOPAMAX [Suspect]
     Route: 065
  4. TOPAMAX [Suspect]
     Route: 065
  5. TOPAMAX [Suspect]
     Route: 065
  6. TOPAMAX [Suspect]
     Indication: DRUG USE FOR UNKNOWN INDICATION
     Route: 065
  7. ORIFIL [Suspect]
     Route: 065
  8. ORIFIL [Suspect]
     Route: 065
  9. ORIFIL [Suspect]
     Route: 065
  10. ORIFIL [Suspect]
     Indication: DRUG USE FOR UNKNOWN INDICATION
     Route: 065
  11. CLINDASTAD [Concomitant]
     Route: 065

REACTIONS (7)
  - ACNE [None]
  - DRUG EFFECT DECREASED [None]
  - FATIGUE [None]
  - HEADACHE [None]
  - PERSONALITY DISORDER [None]
  - SUDDEN UNEXPLAINED DEATH IN EPILEPSY [None]
  - WEIGHT DECREASED [None]
